FAERS Safety Report 4774545-9 (Version None)
Quarter: 2005Q3

REPORT INFORMATION
  Report Type: 
  Country: None (occurrence: None)
  Receive Date: 20050919
  Receipt Date: 20050919
  Transmission Date: 20060218
  Serious: Yes (Hospitalization)
  Sender: FDA-Public Use
  Company Number: None

PATIENT
  Age: 37 Year
  Sex: Female
  Weight: 35.3806 kg

DRUGS (4)
  1. WARFARIN SODIUM [Suspect]
     Indication: PROTEIN C DEFICIENCY
     Dosage: 8 MG QD PO
     Route: 048
  2. DIGOXIN [Suspect]
     Indication: ATRIAL FIBRILLATION
     Dosage: .125MG DAILY PO
     Route: 048
     Dates: start: 20040624, end: 20050916
  3. DIGOXIN [Suspect]
     Indication: SUPRAVENTRICULAR TACHYCARDIA
     Dosage: .125MG DAILY PO
     Route: 048
     Dates: start: 20040624, end: 20050916
  4. AMIODARONE HCL [Concomitant]

REACTIONS (6)
  - ACCIDENT [None]
  - CHEST PAIN [None]
  - INTERNATIONAL NORMALISED RATIO INCREASED [None]
  - LIP HAEMORRHAGE [None]
  - THERAPEUTIC AGENT TOXICITY [None]
  - WOUND SECRETION [None]
